FAERS Safety Report 6603706-9 (Version None)
Quarter: 2010Q1

REPORT INFORMATION
  Report Type: 
  Country: None (occurrence: None)
  Receive Date: 20100226
  Receipt Date: 20100216
  Transmission Date: 20100710
  Serious: Yes (Other)
  Sender: FDA-Public Use
  Company Number: JP-PFIZER INC-2010024718

PATIENT
  Age: 55 Year
  Sex: Male

DRUGS (4)
  1. CAMPTOSAR [Suspect]
     Dosage: 200 MG, UNK
     Route: 041
     Dates: start: 20091211, end: 20100122
  2. CALCIUM LEVOFOLINATE [Concomitant]
     Dosage: 300 MG, UNK
     Route: 041
     Dates: start: 20091211, end: 20100122
  3. 5-FU [Concomitant]
     Dosage: 3500 MG, UNK
     Route: 041
     Dates: start: 20091211, end: 20100122
  4. AVASTIN [Concomitant]
     Dosage: 5 MG/KG, UNK
     Route: 041
     Dates: start: 20091211, end: 20100122

REACTIONS (1)
  - LIVER DISORDER [None]
